FAERS Safety Report 9672473 (Version 4)
Quarter: 2014Q1

REPORT INFORMATION
  Report Type: Spontaneous
  Country: JP (occurrence: JP)
  Receive Date: 20131106
  Receipt Date: 20140217
  Transmission Date: 20141002
  Serious: Yes (Life-Threatening, Hospitalization)
  Sender: FDA-Public Use
  Company Number: JP-ROCHE-1300302

PATIENT
  Sex: Male

DRUGS (1)
  1. GRTPA [Suspect]
     Indication: THROMBOTIC CEREBRAL INFARCTION
     Route: 042
     Dates: start: 20091106, end: 20091106

REACTIONS (1)
  - Acute myocardial infarction [Recovering/Resolving]
